FAERS Safety Report 4696408-X (Version None)
Quarter: 2005Q2

REPORT INFORMATION
  Report Type: 
  Country: None (occurrence: None)
  Receive Date: 20050620
  Receipt Date: 20050607
  Transmission Date: 20051028
  Serious: Yes (Hospitalization)
  Sender: FDA-Public Use
  Company Number: 215125

PATIENT
  Age: 73 Year
  Sex: Female
  Weight: 46.3 kg

DRUGS (8)
  1. AVASTIN [Suspect]
     Indication: RENAL CELL CARCINOMA STAGE UNSPECIFIED
     Dosage: 463 MG, INTRAVENOUS
     Route: 042
     Dates: start: 20050317, end: 20050331
  2. ERLOTINIB (ERLOTINIB) TABLET, 150MG [Suspect]
     Indication: RENAL CELL CARCINOMA STAGE UNSPECIFIED
     Dosage: 150 MG, ORAL
     Route: 048
     Dates: start: 20050317, end: 20050414
  3. GLEEVEC [Suspect]
     Indication: RENAL CELL CARCINOMA STAGE UNSPECIFIED
     Dosage: 400 MG, ORAL
     Route: 048
     Dates: start: 20050317, end: 20050330
  4. ATENOLOL [Concomitant]
  5. ATACAND [Concomitant]
  6. PEPCID [Concomitant]
  7. PHENERGAN [Concomitant]
  8. OXYCODONE (OXYCODONE) [Concomitant]

REACTIONS (5)
  - APHASIA [None]
  - CONDITION AGGRAVATED [None]
  - HYPERTENSION [None]
  - NAUSEA [None]
  - VOMITING [None]
